FAERS Safety Report 4566996-2 (Version None)
Quarter: 2005Q1

REPORT INFORMATION
  Report Type: 
  Country: None (occurrence: None)
  Receive Date: 20050201
  Receipt Date: 20040225
  Transmission Date: 20050727
  Serious: Yes (Other)
  Sender: FDA-Public Use
  Company Number: US-BRISTOL-MYERS SQUIBB COMPANY-12519781

PATIENT
  Sex: Female

DRUGS (10)
  1. STADOL [Suspect]
     Indication: MIGRAINE
     Route: 045
  2. IMITREX [Concomitant]
  3. PROCARDIA [Concomitant]
  4. INDERAL [Concomitant]
  5. PAXIL [Concomitant]
  6. KLONOPIN [Concomitant]
  7. TENORMIN [Concomitant]
  8. ULTRAM [Concomitant]
  9. NAPROSYN [Concomitant]
  10. DEMEROL [Concomitant]

REACTIONS (1)
  - DEPENDENCE [None]
